FAERS Safety Report 6303860-2 (Version None)
Quarter: 2009Q3

REPORT INFORMATION
  Report Type: 
  Country: None (occurrence: None)
  Receive Date: 20090805
  Receipt Date: 20090727
  Transmission Date: 20100115
  Serious: Yes (Other)
  Sender: FDA-Public Use
  Company Number: 2009SP016857

PATIENT
  Sex: Male

DRUGS (4)
  1. REBETOL [Suspect]
     Indication: DRUG USE FOR UNKNOWN INDICATION
  2. INTRON A [Suspect]
     Indication: DRUG USE FOR UNKNOWN INDICATION
  3. PEGASYS [Suspect]
     Indication: DRUG USE FOR UNKNOWN INDICATION
  4. COPEGUS [Suspect]
     Indication: DRUG USE FOR UNKNOWN INDICATION

REACTIONS (1)
  - CONVULSION [None]
